FAERS Safety Report 7413551-2 (Version None)
Quarter: 2011Q2

REPORT INFORMATION
  Report Type: 
  Country: None (occurrence: None)
  Receive Date: 20110413
  Receipt Date: 20110314
  Transmission Date: 20111010
  Serious: Yes (Death, Hospitalization, Other)
  Sender: FDA-Public Use
  Company Number: GB-TEVA-267820ISR

PATIENT
  Age: 87 Year
  Sex: Female
  Weight: 50.8 kg

DRUGS (7)
  1. DALTEPARIN SODIUM [Suspect]
     Indication: THROMBOSIS PROPHYLAXIS
     Dosage: 5000 IU (INTERNATIONAL UNIT);
     Dates: start: 20101005
  2. TRIMETHOPRIM [Suspect]
     Indication: URINARY TRACT INFECTION
     Dosage: 400 MILLIGRAM;
     Dates: start: 20100918
  3. WARFARIN [Suspect]
     Indication: DEEP VEIN THROMBOSIS
     Dates: start: 20100831, end: 20100919
  4. WARFARIN [Suspect]
     Dates: start: 20100923, end: 20100929
  5. DALTEPARIN SODIUM [Suspect]
     Indication: DEEP VEIN THROMBOSIS
     Dosage: 10000 IU (INTERNATIONAL UNIT);
     Route: 058
     Dates: start: 20100807, end: 20100919
  6. WARFARIN [Suspect]
     Dates: start: 20101005, end: 20101007
  7. IBUPROFEN [Suspect]
     Dosage: 1800 MILLIGRAM;
     Dates: start: 20080101, end: 20100919

REACTIONS (10)
  - URINARY TRACT INFECTION [None]
  - SOMNOLENCE [None]
  - MALAISE [None]
  - INJECTION SITE HAEMORRHAGE [None]
  - GENERAL PHYSICAL HEALTH DETERIORATION [None]
  - DYSPHAGIA [None]
  - BLOOD PRESSURE DECREASED [None]
  - LOWER RESPIRATORY TRACT INFECTION [None]
  - SUBCUTANEOUS HAEMATOMA [None]
  - ANTICOAGULATION DRUG LEVEL ABOVE THERAPEUTIC [None]
